FAERS Safety Report 9770437 (Version 1)
Quarter: 2013Q4

REPORT INFORMATION
  Report Type: Report from Study
  Country: GB (occurrence: GB)
  Receive Date: 20131218
  Receipt Date: 20131218
  Transmission Date: 20140711
  Serious: Yes (Hospitalization)
  Sender: FDA-Public Use
  Company Number: GB-PFIZER INC-2013358059

PATIENT
  Age: 72 Year
  Sex: Male

DRUGS (3)
  1. IBUPROFEN [Suspect]
     Indication: OSTEOARTHRITIS
     Dosage: 400 MG
     Route: 048
     Dates: start: 20101005, end: 20130911
  2. CLARITHROMYCIN [Concomitant]
     Dosage: 500 MG, 2X/DAY
     Dates: start: 20130903, end: 20130909
  3. OMEPRAZOLE [Concomitant]
     Dosage: 10 MG, 1X/DAY
     Dates: start: 20060825, end: 20130924

REACTIONS (1)
  - Acute myocardial infarction [Recovered/Resolved]
